FAERS Safety Report 5400760-7 (Version None)
Quarter: 2007Q3

REPORT INFORMATION
  Report Type: 
  Country: None (occurrence: None)
  Receive Date: 20070730
  Receipt Date: 20070719
  Transmission Date: 20080115
  Serious: Yes (Other)
  Sender: FDA-Public Use
  Company Number: BR-PFIZER INC-2007060405

PATIENT
  Sex: Female

DRUGS (2)
  1. CELEBRA [Suspect]
     Indication: RENAL PAIN
     Route: 048
  2. BUSCOPAN [Concomitant]

REACTIONS (1)
  - ABNORMAL BEHAVIOUR [None]
